FAERS Safety Report 13549981 (Version 2)
Quarter: 2017Q2

REPORT INFORMATION
  Report Type: Spontaneous
  Country: CN (occurrence: CN)
  Receive Date: 20170516
  Receipt Date: 20170628
  Transmission Date: 20170830
  Serious: Yes (Hospitalization)
  Sender: FDA-Public Use
  Company Number: CN-GLAXOSMITHKLINE-CN2017GSK069968

PATIENT
  Age: 3 Year
  Sex: Female

DRUGS (2)
  1. FLIXOTIDE [Suspect]
     Active Substance: FLUTICASONE PROPIONATE
     Dosage: 1 PUFF(S), QOD
     Route: 055
  2. FLIXOTIDE [Suspect]
     Active Substance: FLUTICASONE PROPIONATE
     Indication: ASTHMA
     Dosage: 1 PUFF(S), QD
     Route: 055

REACTIONS (5)
  - Product use issue [Unknown]
  - Pyrexia [Recovered/Resolved]
  - Viral upper respiratory tract infection [Recovered/Resolved]
  - Viral infection [Recovered/Resolved]
  - Cross infection [Unknown]
